FAERS Safety Report 25317154 (Version 1)
Quarter: 2025Q2

REPORT INFORMATION
  Report Type: 
  Country: AU (occurrence: AU)
  Receive Date: 20250515
  Receipt Date: 20250515
  Transmission Date: 20250716
  Serious: Yes (Other)
  Sender: CELLTRION
  Company Number: AU-CELLTRION INC.-2025AU013852

PATIENT

DRUGS (4)
  1. INFLIXIMAB [Suspect]
     Active Substance: INFLIXIMAB
     Indication: Product used for unknown indication
  2. ALBUMIN HUMAN [Concomitant]
     Active Substance: ALBUMIN HUMAN
  3. MESALAMINE [Concomitant]
     Active Substance: MESALAMINE
  4. PREDNISOLONE [Concomitant]
     Active Substance: PREDNISOLONE

REACTIONS (4)
  - Rectal haemorrhage [Unknown]
  - Frequent bowel movements [Unknown]
  - Treatment failure [Unknown]
  - Off label use [Unknown]
